FAERS Safety Report 9402341 (Version 2)
Quarter: 2013Q4

REPORT INFORMATION
  Report Type: Spontaneous
  Country: JP (occurrence: JP)
  Receive Date: 20130716
  Receipt Date: 20131009
  Transmission Date: 20140711
  Serious: Yes (Other)
  Sender: FDA-Public Use
  Company Number: JP-PFIZER INC-2013207323

PATIENT
  Age: 32 Year
  Sex: Female
  Weight: 38 kg

DRUGS (5)
  1. CELECOX [Suspect]
     Indication: ANTIINFLAMMATORY THERAPY
     Dosage: 200 MG, 2X/DAY
     Route: 048
     Dates: start: 20130521, end: 20130605
  2. CELECOX [Suspect]
     Indication: ANALGESIC THERAPY
  3. TAKEPRON [Concomitant]
     Dosage: UNK
  4. LYRICA [Concomitant]
     Dosage: UNK
  5. PREDNISOLONE [Concomitant]
     Indication: SYSTEMIC LUPUS ERYTHEMATOSUS
     Dosage: 1 MG/KG, 40MG DAILY

REACTIONS (3)
  - Erythema [Recovered/Resolved]
  - Rash [Recovered/Resolved]
  - Pyrexia [Unknown]
